FAERS Safety Report 10220754 (Version 1)
Quarter: 2014Q2

REPORT INFORMATION
  Report Type: Spontaneous
  Country: US (occurrence: None)
  Receive Date: 20140605
  Receipt Date: 20140605
  Transmission Date: 20141212
  Serious: Yes (Other)
  Sender: FDA-Public Use
  Company Number: None

PATIENT
  Age: 71 Year
  Sex: Female

DRUGS (1)
  1. HYDROXYUREA 500 MG [Suspect]
     Indication: DRUG THERAPY
     Dosage: 500 X 2 TWICE DAILY TAKEN BY MOUTH
     Route: 048
     Dates: start: 20140407, end: 20140419

REACTIONS (3)
  - Nausea [None]
  - Dizziness [None]
  - Headache [None]
